FAERS Safety Report 23009832 (Version 2)
Quarter: 2023Q4

REPORT INFORMATION
  Report Type: Spontaneous
  Country: US (occurrence: None)
  Receive Date: 20230929
  Receipt Date: 20231011
  Transmission Date: 20240110
  Serious: Yes (Other)
  Sender: FDA-Public Use
  Company Number: US-FARMAPROD-202308-2579

PATIENT
  Age: 94 Year
  Sex: Female

DRUGS (10)
  1. OXERVATE [Suspect]
     Active Substance: CENEGERMIN-BKBJ
     Indication: Neurotrophic keratopathy
     Route: 047
     Dates: start: 20230824
  2. MINERALS\VITAMINS [Concomitant]
     Active Substance: MINERALS\VITAMINS
     Dosage: 2148-113
  3. VENCLEXTA [Concomitant]
     Active Substance: VENETOCLAX
  4. NORVASC [Concomitant]
     Active Substance: AMLODIPINE BESYLATE
  5. ATENOLOL [Concomitant]
     Active Substance: ATENOLOL
  6. PREDNISOLONE ACETATE [Concomitant]
     Active Substance: PREDNISOLONE ACETATE
  7. VOLTAREN ARTHRITIS PAIN [Concomitant]
     Active Substance: DICLOFENAC SODIUM
  8. FLONASE ALLERGY RELIEF [Concomitant]
     Active Substance: FLUTICASONE PROPIONATE
  9. HYDROCODONE [Concomitant]
     Active Substance: HYDROCODONE
  10. CREAM CONCENTRATE [Concomitant]

REACTIONS (13)
  - Spinal fracture [Unknown]
  - Fall [Unknown]
  - Pain [Unknown]
  - Muscular weakness [Unknown]
  - Peripheral swelling [Unknown]
  - Product use complaint [Not Recovered/Not Resolved]
  - Wrong technique in product usage process [Unknown]
  - Lacrimation increased [Not Recovered/Not Resolved]
  - Product dose omission issue [Unknown]
  - Periorbital pain [Unknown]
  - Eye pain [Not Recovered/Not Resolved]
  - Eye pruritus [Unknown]
  - Eye irritation [Not Recovered/Not Resolved]

NARRATIVE: CASE EVENT DATE: 20230901
